FAERS Safety Report 9834548 (Version 1)
Quarter: 2014Q1

REPORT INFORMATION
  Report Type: Spontaneous
  Country: US (occurrence: US)
  Receive Date: 20140122
  Receipt Date: 20140122
  Transmission Date: 20141002
  Serious: No
  Sender: FDA-Public Use
  Company Number: US-BAYER-2014-010046

PATIENT
  Age: 82 Year
  Sex: Female
  Weight: 61 kg

DRUGS (4)
  1. CIPRO [Suspect]
     Indication: PRODUCT USED FOR UNKNOWN INDICATION
  2. BENICAR [Concomitant]
     Dosage: 2.5 MG, QD
  3. ASPIRIN [Concomitant]
     Dosage: 81 MG, UNK
  4. CENTRUM SILVER [Concomitant]

REACTIONS (1)
  - Hypersensitivity [None]
